FAERS Safety Report 9137318 (Version 2)
Quarter: 2013Q1

REPORT INFORMATION
  Report Type: Spontaneous
  Country: IT (occurrence: IT)
  Receive Date: 20130304
  Receipt Date: 20130315
  Transmission Date: 20140127
  Serious: Yes (Other)
  Sender: FDA-Public Use
  Company Number: IT-PFIZER INC-2013073007

PATIENT
  Age: 12 Year
  Sex: Female

DRUGS (2)
  1. ZOLOFT [Suspect]
     Indication: DEPRESSION
     Dosage: 100 MG, DAILY
     Route: 048
     Dates: start: 20091001
  2. XANAX [Concomitant]
     Dosage: 3 GTT, 1X/DAY

REACTIONS (3)
  - Dysphoria [Recovering/Resolving]
  - Psychomotor hyperactivity [Recovering/Resolving]
  - Self injurious behaviour [Recovering/Resolving]
